FAERS Safety Report 5138167-2 (Version None)
Quarter: 2006Q4

REPORT INFORMATION
  Report Type: 
  Country: None (occurrence: None)
  Receive Date: 20061030
  Receipt Date: 20061016
  Transmission Date: 20070319
  Serious: Yes (Hospitalization)
  Sender: FDA-Public Use
  Company Number: FR-JNJFOC-20061005514

PATIENT
  Age: 90 Year
  Sex: Female

DRUGS (10)
  1. ACETAMINOPHEN AND TRAMADOL HCL [Suspect]
     Indication: DRUG USE FOR UNKNOWN INDICATION
     Route: 048
  2. LOPERAMIDE [Suspect]
     Indication: DRUG USE FOR UNKNOWN INDICATION
     Route: 048
  3. STABLON [Suspect]
     Route: 048
  4. STABLON [Suspect]
     Indication: DRUG USE FOR UNKNOWN INDICATION
     Route: 048
  5. RIVOTRIL [Concomitant]
     Route: 065
  6. RENITEC [Concomitant]
     Route: 065
  7. NOVONORM [Concomitant]
     Route: 065
  8. ASPEGIC 1000 [Concomitant]
     Route: 048
  9. CYCLO [Concomitant]
     Route: 061
  10. LAMALINE [Concomitant]
     Route: 065

REACTIONS (3)
  - FALL [None]
  - MALAISE [None]
  - VERTIGO [None]
